FAERS Safety Report 14558105 (Version 1)
Quarter: 2018Q1

REPORT INFORMATION
  Report Type: Report from Study
  Country: US (occurrence: US)
  Receive Date: 20180221
  Receipt Date: 20180221
  Transmission Date: 20180509
  Serious: Yes (Other)
  Sender: FDA-Public Use
  Company Number: PHEH2018US005480

PATIENT
  Sex: Female

DRUGS (1)
  1. ENTRESTO [Suspect]
     Active Substance: SACUBITRIL\VALSARTAN
     Indication: PRODUCT USED FOR UNKNOWN INDICATION
     Route: 048

REACTIONS (8)
  - Weight increased [Unknown]
  - Swelling [Unknown]
  - Cough [Unknown]
  - Myocardial infarction [Unknown]
  - Urinary tract infection [Unknown]
  - Memory impairment [Unknown]
  - Fatigue [Unknown]
  - Dyspnoea [Unknown]
